FAERS Safety Report 12815819 (Version 1)
Quarter: 2016Q4

REPORT INFORMATION
  Report Type: Spontaneous
  Country: US (occurrence: US)
  Receive Date: 20161005
  Receipt Date: 20161005
  Transmission Date: 20170207
  Serious: Yes (Other)
  Sender: FDA-Public Use
  Company Number: US-TEVA-697678USA

PATIENT
  Sex: Male

DRUGS (4)
  1. PROAIR HFA [Suspect]
     Active Substance: ALBUTEROL SULFATE
  2. LYRICA [Concomitant]
     Active Substance: PREGABALIN
     Dosage: 150 MILLIGRAM DAILY;
  3. NORVASC [Concomitant]
     Active Substance: AMLODIPINE BESYLATE
  4. DILANTIN [Concomitant]
     Active Substance: PHENYTOIN

REACTIONS (2)
  - Drug hypersensitivity [Unknown]
  - Seizure [Unknown]
